FAERS Safety Report 23537255 (Version 10)
Quarter: 2025Q1

REPORT INFORMATION
  Report Type: Report from Study
  Country: CO (occurrence: CO)
  Receive Date: 20240219
  Receipt Date: 20250105
  Transmission Date: 20250409
  Serious: Yes (Hospitalization, Other)
  Sender: AMGEN
  Company Number: CO-AMGEN-COLSL2024032074

PATIENT
  Age: 71 Year
  Sex: Female

DRUGS (1)
  1. VECTIBIX [Suspect]
     Active Substance: PANITUMUMAB
     Indication: Colorectal cancer metastatic
     Dosage: 300 MILLIGRAM, Q2WK/ BIWEEKLY
     Route: 042
     Dates: start: 20240202, end: 20241114

REACTIONS (9)
  - Vaginal discharge [Not Recovered/Not Resolved]
  - Genital burning sensation [Not Recovered/Not Resolved]
  - Genital erythema [Not Recovered/Not Resolved]
  - Skin burning sensation [Not Recovered/Not Resolved]
  - Erythema [Not Recovered/Not Resolved]
  - Abdominal pain [Not Recovered/Not Resolved]
  - Colorectal cancer metastatic [Not Recovered/Not Resolved]
  - Rash [Not Recovered/Not Resolved]
  - Dry skin [Not Recovered/Not Resolved]

NARRATIVE: CASE EVENT DATE: 20240101
